FAERS Safety Report 17021396 (Version 2)
Quarter: 2019Q4

REPORT INFORMATION
  Report Type: Spontaneous
  Country: US (occurrence: US)
  Receive Date: 20191112
  Receipt Date: 20191204
  Transmission Date: 20200122
  Serious: No
  Sender: FDA-Public Use
  Company Number: US-PFIZER INC-2019485035

PATIENT
  Age: 80 Year
  Sex: Male
  Weight: 74.84 kg

DRUGS (2)
  1. LYRICA [Suspect]
     Active Substance: PREGABALIN
     Indication: NEUROPATHY PERIPHERAL
     Dosage: 3 DF, 2X/DAY (75 MG 2X A DAY)
     Route: 048
     Dates: start: 20190705
  2. LYRICA [Suspect]
     Active Substance: PREGABALIN
     Dosage: 25 MG, IN THE MORNING AND SOMETIMES ONE IN THE EVENING

REACTIONS (3)
  - Muscle spasms [Unknown]
  - Intentional product misuse [Unknown]
  - Drug ineffective [Unknown]

NARRATIVE: CASE EVENT DATE: 201909
